FAERS Safety Report 23432683 (Version 1)
Quarter: 2024Q1

REPORT INFORMATION
  Report Type: Spontaneous
  Country: None (occurrence: US)
  Receive Date: 20240123
  Receipt Date: 20240123
  Transmission Date: 20240410
  Serious: No
  Sender: FDA-Public Use
  Company Number: US-Ricola USA Inc.-2151779

PATIENT
  Sex: Male

DRUGS (1)
  1. ORIGINAL HERB COUGH DROPS [Suspect]
     Active Substance: MENTHOL
     Indication: Mouth injury
     Route: 048

REACTIONS (1)
  - Mouth injury [Recovered/Resolved]
